FAERS Safety Report 9335583 (Version 1)
Quarter: 2013Q2

REPORT INFORMATION
  Report Type: Spontaneous
  Country: US (occurrence: US)
  Receive Date: 20130605
  Receipt Date: 20130605
  Transmission Date: 20140414
  Serious: Yes (Hospitalization)
  Sender: FDA-Public Use
  Company Number: US-B.I. PHARMACEUTICALS,INC./RIDGEFIELD-2013-BI-15803BP

PATIENT
  Age: 7 Decade
  Sex: Female

DRUGS (3)
  1. PRADAXA [Suspect]
     Indication: ATRIAL FIBRILLATION
     Dosage: 300 MG
     Route: 048
     Dates: start: 2012, end: 201305
  2. CLOPIDOGREL [Concomitant]
  3. ASPIRIN [Concomitant]

REACTIONS (1)
  - Gastrointestinal haemorrhage [Recovered/Resolved]
